FAERS Safety Report 25774682 (Version 2)
Quarter: 2025Q3

REPORT INFORMATION
  Report Type: Other
  Country: CN (occurrence: CN)
  Receive Date: 20250908
  Receipt Date: 20250910
  Transmission Date: 20251021
  Serious: Yes (Hospitalization)
  Sender: AMARIN
  Company Number: CN-Amarin Pharma  Inc-2025AMR000580

PATIENT
  Age: 37 Year
  Sex: Male
  Weight: 77 kg

DRUGS (2)
  1. VASCEPA [Suspect]
     Active Substance: ICOSAPENT ETHYL
     Indication: Hyperlipidaemia
     Dates: start: 20250718, end: 20250819
  2. HENAGLIFLOZIN PROLINE [Suspect]
     Active Substance: HENAGLIFLOZIN PROLINE
     Indication: Type 2 diabetes mellitus
     Dates: start: 20250718, end: 20250819

REACTIONS (2)
  - Liver function test increased [Recovering/Resolving]
  - Blood ketone body increased [Recovering/Resolving]

NARRATIVE: CASE EVENT DATE: 20250819
